FAERS Safety Report 8889901 (Version 3)
Quarter: 2012Q4

REPORT INFORMATION
  Report Type: Report from Study
  Country: US (occurrence: US)
  Receive Date: 20121107
  Receipt Date: 20121114
  Transmission Date: 20130627
  Serious: Yes (Hospitalization)
  Sender: FDA-Public Use
  Company Number: US-JNJFOC-20121102322

PATIENT
  Age: 19 Year
  Sex: Female
  Weight: 70.5 kg

DRUGS (7)
  1. REMICADE [Suspect]
     Indication: INFLAMMATORY BOWEL DISEASE
     Route: 042
     Dates: start: 20120220
  2. HUMIRA [Concomitant]
  3. PRILOSEC [Concomitant]
  4. BENTYL [Concomitant]
  5. CELEBREX [Concomitant]
  6. MIRALAX [Concomitant]
  7. ELAVIL [Concomitant]

REACTIONS (1)
  - Constipation [Recovered/Resolved]
